FAERS Safety Report 8342703-2 (Version None)
Quarter: 2012Q2

REPORT INFORMATION
  Report Type: 
  Country: None (occurrence: None)
  Receive Date: 20120503
  Receipt Date: 20120424
  Transmission Date: 20120825
  Serious: Yes (Death)
  Sender: FDA-Public Use
  Company Number: CIP-2012-00117

PATIENT

DRUGS (3)
  1. IRINOTECAN HCL [Suspect]
     Indication: METASTATIC NEOPLASM
     Dosage: 180 MG/M2 (DAY 1,EVERY TWO WEEKS),INTRAVENOUS
     Route: 042
  2. CAPECITABINE [Suspect]
     Indication: METASTATIC NEOPLASM
     Dosage: 3,000 MGM2/DAY(DAY 1-7, TWICE DAILY, EVERY TWO WEEKS),ORAL
     Route: 048
  3. OXALIPLATIN [Suspect]
     Indication: METASTATIC NEOPLASM
     Dosage: 85 MG/M2 OVER TWO HOURS (DAY 1, EVERY TWO WEEKS),INTRAVENOUS
     Route: 042

REACTIONS (1)
  - LUNG DISORDER [None]
